FAERS Safety Report 20347214 (Version 1)
Quarter: 2022Q1

REPORT INFORMATION
  Report Type: Report from Study
  Country: CA (occurrence: CA)
  Receive Date: 20220118
  Receipt Date: 20220118
  Transmission Date: 20220423
  Serious: Yes (Other)
  Sender: FDA-Public Use
  Company Number: CA-GLAXOSMITHKLINE-CA2022007264

PATIENT
  Age: 50 Year
  Sex: Female

DRUGS (1)
  1. MEPOLIZUMAB [Suspect]
     Active Substance: MEPOLIZUMAB
     Indication: Asthma
     Dosage: 100 MG, Z
     Route: 058
     Dates: start: 20201020

REACTIONS (3)
  - Asthmatic crisis [Unknown]
  - Productive cough [Unknown]
  - Injection site pain [Unknown]

NARRATIVE: CASE EVENT DATE: 20211201
